FAERS Safety Report 4476145-7 (Version None)
Quarter: 2004Q3

REPORT INFORMATION
  Report Type: 
  Country: None (occurrence: None)
  Receive Date: 20040923
  Receipt Date: 20040730
  Transmission Date: 20050211
  Serious: No
  Sender: FDA-Public Use
  Company Number: USA040670593

PATIENT
  Age: 75 Year
  Sex: Female
  Weight: 36 kg

DRUGS (3)
  1. FORTEO [Suspect]
     Indication: OSTEOPOROSIS
     Dosage: 20 UG DAY
     Dates: start: 20040615
  2. MULTIVITAMIN [Concomitant]
  3. POTASSIUM [Concomitant]

REACTIONS (7)
  - DIZZINESS [None]
  - GASTROINTESTINAL DISORDER [None]
  - HALLUCINATION [None]
  - HEADACHE [None]
  - HYPOAESTHESIA [None]
  - NAUSEA [None]
  - RASH [None]
